FAERS Safety Report 24246165 (Version 1)
Quarter: 2024Q3

REPORT INFORMATION
  Report Type: Spontaneous
  Country: US (occurrence: US)
  Receive Date: 20240824
  Receipt Date: 20240824
  Transmission Date: 20241016
  Serious: No
  Sender: AMGEN
  Company Number: US-AMGEN-USASP2024164772

PATIENT

DRUGS (7)
  1. PREDNISONE [Suspect]
     Active Substance: PREDNISONE
     Indication: Chronic rhinosinusitis without nasal polyps
     Dosage: 30 MILLIGRAM, QD (4 DAYS)
     Route: 048
  2. PREDNISONE [Suspect]
     Active Substance: PREDNISONE
     Dosage: 20 MILLIGRAM, QD (4 DAYS)
     Route: 048
  3. PREDNISONE [Suspect]
     Active Substance: PREDNISONE
     Dosage: 10 MILLIGRAM, QD (4 DAYS)
     Route: 048
  4. FLUTICASONE [Concomitant]
     Active Substance: FLUTICASONE
     Indication: Chronic rhinosinusitis without nasal polyps
     Dosage: UNK
     Route: 065
  5. SALINE [Concomitant]
     Active Substance: SODIUM CHLORIDE
     Indication: Chronic rhinosinusitis without nasal polyps
     Dosage: UNK
     Route: 065
  6. AMOXICILLIN [Concomitant]
     Active Substance: AMOXICILLIN
     Indication: Chronic rhinosinusitis without nasal polyps
     Dosage: 825 MILLIGRAM
     Route: 065
  7. CLAVULANIC ACID [Concomitant]
     Active Substance: CLAVULANIC ACID
     Indication: Chronic rhinosinusitis without nasal polyps
     Dosage: 125 MILLIGRAM
     Route: 065

REACTIONS (14)
  - Appetite disorder [Unknown]
  - Abdominal discomfort [Unknown]
  - Vision blurred [Unknown]
  - Aggression [Unknown]
  - Nervousness [Unknown]
  - Hypertension [Unknown]
  - Insomnia [Unknown]
  - Fluid retention [Unknown]
  - Weight increased [Unknown]
  - Mood swings [Unknown]
  - Muscular weakness [Unknown]
  - Headache [Unknown]
  - Drug ineffective for unapproved indication [Unknown]
  - Off label use [Unknown]
